FAERS Safety Report 9402850 (Version 1)
Quarter: 2013Q3

REPORT INFORMATION
  Report Type: Spontaneous
  Country: US (occurrence: None)
  Receive Date: 20130715
  Receipt Date: 20130715
  Transmission Date: 20140515
  Serious: Yes (Hospitalization)
  Sender: FDA-Public Use
  Company Number: None

PATIENT
  Age: 61 Year
  Sex: Female
  Weight: 80.28 kg

DRUGS (7)
  1. ENOXAPARIN [Suspect]
     Indication: THROMBOSIS PROPHYLAXIS
     Dosage: 30MG  Q12H  SQ
     Route: 058
     Dates: start: 20130604, end: 20130604
  2. DIAZEPAM [Concomitant]
  3. TORADOL [Concomitant]
  4. ZOFRAN [Concomitant]
  5. OXYCODONE [Concomitant]
  6. PERCOCET [Concomitant]
  7. PERI-COLACE [Concomitant]

REACTIONS (4)
  - Haematoma [None]
  - Aspiration [None]
  - Skin necrosis [None]
  - Infection [None]
